FAERS Safety Report 10249289 (Version 1)
Quarter: 2014Q2

REPORT INFORMATION
  Report Type: Spontaneous
  Country: US (occurrence: US)
  Receive Date: 20140620
  Receipt Date: 20140620
  Transmission Date: 20141212
  Serious: Yes (Hospitalization)
  Sender: FDA-Public Use
  Company Number: US-ELI_LILLY_AND_COMPANY-US201406003102

PATIENT
  Age: 53 Year
  Sex: Male
  Weight: 153 kg

DRUGS (15)
  1. CYMBALTA [Suspect]
     Indication: PROPHYLAXIS
     Dosage: 60 MG, QD
     Route: 048
     Dates: start: 20130513, end: 20130801
  2. CELECOXIB [Suspect]
     Indication: OSTEOARTHRITIS
     Dosage: 1 DF, UNKNOWN
     Route: 065
     Dates: start: 20130404, end: 201307
  3. CELECOXIB [Suspect]
     Indication: RHEUMATOID ARTHRITIS
  4. NAPROXEN [Suspect]
     Indication: OSTEOARTHRITIS
     Dosage: 1 DF, UNKNOWN
     Route: 065
     Dates: start: 20130404, end: 201307
  5. NAPROXEN [Suspect]
     Indication: RHEUMATOID ARTHRITIS
  6. IBUPROFEN [Suspect]
     Indication: OSTEOARTHRITIS
     Dosage: 1 DF, UNKNOWN
     Route: 065
     Dates: start: 20130404, end: 201307
  7. IBUPROFEN [Suspect]
     Indication: RHEUMATOID ARTHRITIS
  8. COMBIVENT [Concomitant]
     Indication: EMPHYSEMA
     Dosage: UNK
     Dates: start: 201211
  9. SYMBICORT [Concomitant]
     Indication: EMPHYSEMA
     Dosage: UNK
     Dates: start: 201211
  10. MAXIDEX [Concomitant]
     Indication: HYPERTENSION
     Dosage: UNK
     Dates: start: 2008
  11. LISINOPRIL [Concomitant]
     Indication: HYPERTENSION
     Dosage: UNK
     Dates: start: 2008
  12. ASPIRIN [Concomitant]
     Indication: PROPHYLAXIS
     Dosage: UNK
     Dates: start: 201107
  13. MELOXICAM [Concomitant]
  14. HYDROCODONE [Concomitant]
     Dosage: UNK
     Dates: start: 2013
  15. BACTRIUM DS [Concomitant]
     Indication: CELLULITIS
     Dosage: UNK
     Dates: end: 20130805

REACTIONS (5)
  - Transient global amnesia [Recovered/Resolved]
  - Cellulitis [Recovered/Resolved]
  - Off label use [Recovered/Resolved]
  - Intentional product misuse [Recovered/Resolved]
  - Drug withdrawal syndrome [Recovered/Resolved]
